FAERS Safety Report 20764100 (Version 2)
Quarter: 2022Q2

REPORT INFORMATION
  Report Type: Spontaneous
  Country: US (occurrence: US)
  Receive Date: 20220428
  Receipt Date: 20220525
  Transmission Date: 20220720
  Serious: Yes (Other)
  Sender: FDA-Public Use
  Company Number: US-PFIZER INC-202200359293

PATIENT
  Age: 76 Year
  Sex: Female
  Weight: 68.3 kg

DRUGS (1)
  1. IBRANCE [Suspect]
     Active Substance: PALBOCICLIB
     Indication: Breast cancer female
     Dosage: 125 MG, CYCLIC (ONE TABLET ONCE A DAY, THREE WEEKS ON AND ONE WEEK OFF)
     Route: 048
     Dates: start: 20220201

REACTIONS (3)
  - Product dose omission issue [Unknown]
  - Pancreas infection [Unknown]
  - Memory impairment [Unknown]
